FAERS Safety Report 6403806-2 (Version None)
Quarter: 2009Q4

REPORT INFORMATION
  Report Type: 
  Country: None (occurrence: None)
  Receive Date: 20091013
  Receipt Date: 20090805
  Transmission Date: 20100525
  Serious: Yes (Hospitalization)
  Sender: FDA-Public Use
  Company Number: JP-GUERBET-20090025

PATIENT
  Age: 50 Year
  Sex: Male

DRUGS (11)
  1. HEXABRIX [Suspect]
     Indication: ANGIOGRAM CEREBRAL
     Dosage: DOSAGE: 40, ML MILLILITRE(S), 1, 1, TOTAL INTRA-ARTERIAL
     Route: 013
     Dates: start: 20090805, end: 20090805
  2. NICARDIPINE HYDROCHLORIDE [Concomitant]
  3. FAMOTIDINE [Concomitant]
  4. NOVOLIN INSULIN HUMAN: / INSULIN [Concomitant]
  5. SOLITA-T NO 3G: / SODIUM - POTASSIUM - CHLORIDE - LACTATE [Concomitant]
  6. LACTEC: / SODIUM - POTASSIUM - CHLORIDE - LACTATE [Concomitant]
  7. EKONAL: / NIZOFENONE FUMARATE [Concomitant]
  8. SOSEGON INJECTION: / PENTAZOCINE [Concomitant]
  9. DIAZEPAM [Concomitant]
  10. HEPARIN [Concomitant]
  11. VITAMEDIN: / CYANOCOBALAMIN [Concomitant]

REACTIONS (10)
  - BLOOD BILIRUBIN INCREASED [None]
  - BLOOD GLUCOSE INCREASED [None]
  - BLOOD POTASSIUM DECREASED [None]
  - BRADYCARDIA [None]
  - GENERALISED ERYTHEMA [None]
  - HYPOTENSION [None]
  - RED BLOOD CELL COUNT INCREASED [None]
  - SHOCK [None]
  - TACHYCARDIA [None]
  - WHITE BLOOD CELL COUNT INCREASED [None]
